FAERS Safety Report 8434030-X (Version None)
Quarter: 2012Q2

REPORT INFORMATION
  Report Type: 
  Country: None (occurrence: None)
  Receive Date: 20120613
  Receipt Date: 20120530
  Transmission Date: 20120825
  Serious: No
  Sender: FDA-Public Use
  Company Number: US-ASTRAZENECA-2011SE05145

PATIENT
  Age: 38 Year
  Sex: Female
  Weight: 97.5 kg

DRUGS (2)
  1. ZOMIG [Suspect]
     Route: 048
  2. SEROQUEL [Suspect]
     Dosage: 3 AND HALF TABLETS, DAILY
     Route: 048

REACTIONS (6)
  - NASOPHARYNGITIS [None]
  - MIGRAINE [None]
  - APHONIA [None]
  - INTENTIONAL DRUG MISUSE [None]
  - ACTIVITIES OF DAILY LIVING IMPAIRED [None]
  - MALAISE [None]
